FAERS Safety Report 6227309-3 (Version None)
Quarter: 2009Q2

REPORT INFORMATION
  Report Type: 
  Country: None (occurrence: None)
  Receive Date: 20090612
  Receipt Date: 20090602
  Transmission Date: 20091009
  Serious: Yes (Other)
  Sender: FDA-Public Use
  Company Number: BR-ABBOTT-09P-020-0577271-00

PATIENT
  Age: 8 Month
  Sex: Female

DRUGS (1)
  1. DEPAKOTE [Suspect]
     Indication: INFANTILE SPASMS
     Route: 048
     Dates: start: 20090424

REACTIONS (1)
  - EPILEPSY [None]
